FAERS Safety Report 9158197 (Version 1)
Quarter: 2013Q1

REPORT INFORMATION
  Report Type: Spontaneous
  Country: US (occurrence: US)
  Receive Date: 20130312
  Receipt Date: 20130312
  Transmission Date: 20140127
  Serious: No
  Sender: FDA-Public Use
  Company Number: US-PFIZER INC-2013079477

PATIENT
  Sex: 0

DRUGS (11)
  1. ERYTHROMYCIN [Suspect]
     Dosage: UNK
  2. NEURONTIN [Suspect]
     Dosage: UNK
  3. DILANTIN [Suspect]
     Dosage: UNK
  4. LYRICA [Suspect]
     Dosage: UNK
  5. SPIRIVA [Suspect]
     Dosage: UNK
  6. DEPAKOTE [Suspect]
     Dosage: UNK
  7. TEGRETOL [Suspect]
     Dosage: UNK
  8. PHENOBARBITAL [Suspect]
     Dosage: UNK
  9. TOLECTIN [Suspect]
     Dosage: UNK
  10. GENTAMYCIN [Suspect]
     Dosage: UNK
  11. ADVAIR [Suspect]
     Dosage: UNK

REACTIONS (1)
  - Drug hypersensitivity [Unknown]
